FAERS Safety Report 9815015 (Version 2)
Quarter: 2014Q1

REPORT INFORMATION
  Report Type: Report from Study
  Country: GB (occurrence: GB)
  Receive Date: 20140114
  Receipt Date: 20140326
  Transmission Date: 20141002
  Serious: Yes (Hospitalization)
  Sender: FDA-Public Use
  Company Number: GB-ROCHE-1331489

PATIENT
  Sex: Female
  Weight: 106 kg

DRUGS (2)
  1. TOCILIZUMAB [Suspect]
     Indication: RHEUMATOID ARTHRITIS
     Dosage: LAST DOSE PRIOR TO SAE: 22/NOV/2013
     Route: 065
     Dates: start: 20120426
  2. METHOTREXATE [Concomitant]

REACTIONS (1)
  - Diverticulum intestinal [Unknown]
